FAERS Safety Report 10907450 (Version 1)
Quarter: 2015Q1

REPORT INFORMATION
  Report Type: Spontaneous
  Country: US (occurrence: None)
  Receive Date: 20150309
  Receipt Date: 20150309
  Transmission Date: 20150721
  Serious: Yes (Hospitalization)
  Sender: FDA-Public Use
  Company Number: None

PATIENT
  Age: 66 Year
  Sex: Female
  Weight: 84.1 kg

DRUGS (1)
  1. BEVACIZUMAB [Suspect]
     Active Substance: BEVACIZUMAB
     Dates: end: 20150122

REACTIONS (5)
  - Fatigue [None]
  - Diarrhoea [None]
  - Skin ulcer [None]
  - Constipation [None]
  - Pulmonary embolism [None]

NARRATIVE: CASE EVENT DATE: 20150302
